FAERS Safety Report 20443642 (Version 4)
Quarter: 2022Q2

REPORT INFORMATION
  Report Type: Report from Study
  Country: CO (occurrence: CO)
  Receive Date: 20220208
  Receipt Date: 20220505
  Transmission Date: 20220721
  Serious: Yes (Death, Life-Threatening, Hospitalization)
  Sender: FDA-Public Use
  Company Number: CO-NOVARTISPH-NVSC2022CO004510

PATIENT
  Age: 69 Year
  Sex: Female
  Weight: 60 kg

DRUGS (17)
  1. GILENYA [Suspect]
     Active Substance: FINGOLIMOD HYDROCHLORIDE
     Indication: Multiple sclerosis
     Dosage: 1 MG, QD
     Route: 048
     Dates: start: 20201007
  2. GILENYA [Suspect]
     Active Substance: FINGOLIMOD HYDROCHLORIDE
     Dosage: 1 DOSAGE FORM, Q48H
     Route: 048
  3. CARBAMAZEPINE [Suspect]
     Active Substance: CARBAMAZEPINE
     Indication: Product used for unknown indication
     Dosage: UNK
     Route: 065
  4. LEVOTHYROXINE [Concomitant]
     Active Substance: LEVOTHYROXINE
     Indication: Product used for unknown indication
     Dosage: 100 MCG/QD
     Route: 048
  5. LEVOTHYROXINE [Concomitant]
     Active Substance: LEVOTHYROXINE
     Dosage: 150 MCG/DAY, QOD
     Route: 048
  6. CETIRIZINE [Concomitant]
     Active Substance: CETIRIZINE HYDROCHLORIDE
     Indication: Product used for unknown indication
     Dosage: 10 MG, Q12H
     Route: 048
  7. TAMOXIFEN [Concomitant]
     Active Substance: TAMOXIFEN
     Indication: Product used for unknown indication
     Dosage: UNK
     Route: 065
  8. SALINE [Concomitant]
     Active Substance: SODIUM CHLORIDE
     Indication: Product used for unknown indication
     Dosage: 50 CC EVERY HOUR
     Route: 065
  9. ENOXAPARIN [Concomitant]
     Active Substance: ENOXAPARIN
     Indication: Product used for unknown indication
     Dosage: SOLUTION QD (EVERY NIGHT)
     Route: 065
  10. SUCRALFATE [Concomitant]
     Active Substance: SUCRALFATE
     Indication: Product used for unknown indication
     Dosage: UNK, Q8H
     Route: 048
  11. LORATADINE [Concomitant]
     Active Substance: LORATADINE
     Indication: Product used for unknown indication
     Dosage: UNK, Q12H
     Route: 048
  12. CLINDAMYCIN [Concomitant]
     Active Substance: CLINDAMYCIN
     Indication: Product used for unknown indication
     Dosage: UNK, Q6H
     Route: 042
     Dates: start: 20211221
  13. ASPIRIN [Concomitant]
     Active Substance: ASPIRIN
     Indication: Product used for unknown indication
     Dosage: UNK, QD
     Route: 048
  14. ATORVASTATIN [Concomitant]
     Active Substance: ATORVASTATIN
     Indication: Product used for unknown indication
     Dosage: UNK UNK, QD EVERY NIGHT
     Route: 048
  15. CEFAZOLIN [Concomitant]
     Active Substance: CEFAZOLIN
     Indication: Product used for unknown indication
     Dosage: UNK, Q8H
     Route: 042
     Dates: start: 20211226
  16. LACTULOSE [Concomitant]
     Active Substance: LACTULOSE
     Indication: Product used for unknown indication
     Dosage: 1 SACHET UNTIL ACHIEVING DEFECATION
     Route: 048
  17. CEFEPIME [Concomitant]
     Active Substance: CEFEPIME HYDROCHLORIDE
     Indication: Product used for unknown indication
     Dosage: 1 G, Q8H
     Route: 042
     Dates: start: 20211230

REACTIONS (76)
  - Respiratory depression [Fatal]
  - Carotid pulse decreased [Fatal]
  - Feeling cold [Fatal]
  - Mydriasis [Fatal]
  - Near death experience [Unknown]
  - Loss of consciousness [Not Recovered/Not Resolved]
  - Dermatitis [Not Recovered/Not Resolved]
  - Skin lesion [Not Recovered/Not Resolved]
  - Stress [Not Recovered/Not Resolved]
  - Oedema peripheral [Not Recovered/Not Resolved]
  - Hypothermia [Not Recovered/Not Resolved]
  - Weight decreased [Not Recovered/Not Resolved]
  - Night sweats [Not Recovered/Not Resolved]
  - Skin burning sensation [Not Recovered/Not Resolved]
  - Hypotension [Not Recovered/Not Resolved]
  - Asthenia [Not Recovered/Not Resolved]
  - Slow speech [Not Recovered/Not Resolved]
  - Facial paralysis [Unknown]
  - Bradyphrenia [Unknown]
  - Fall [Unknown]
  - Leukocoria [Unknown]
  - Ischaemia [Unknown]
  - Blood sodium decreased [Unknown]
  - Culture urine positive [Unknown]
  - Cerebral atrophy [Unknown]
  - Leukoencephalopathy [Unknown]
  - Toxic skin eruption [Unknown]
  - Motor dysfunction [Unknown]
  - Dyskinesia [Unknown]
  - Dysphagia [Unknown]
  - Aphasia [Unknown]
  - Somnolence [Unknown]
  - Bradypnoea [Unknown]
  - Apnoea [Unknown]
  - Paraesthesia [Unknown]
  - Discomfort [Unknown]
  - Cerebrovascular accident [Unknown]
  - Hyponatraemia [Unknown]
  - Erythema [Unknown]
  - Blood thyroid stimulating hormone increased [Unknown]
  - Electrocardiogram P wave abnormal [Unknown]
  - Arteriosclerosis [Unknown]
  - Delirium [Unknown]
  - Disorientation [Unknown]
  - Disturbance in attention [Unknown]
  - Dyspraxia [Unknown]
  - Distractibility [Unknown]
  - Mutism [Unknown]
  - Visual impairment [Unknown]
  - Affective disorder [Unknown]
  - Hyperoxia [Unknown]
  - Constipation [Unknown]
  - Haemoglobin decreased [Unknown]
  - Polymerase chain reaction positive [Unknown]
  - Hypokalaemia [Unknown]
  - Fluid imbalance [Unknown]
  - Respiratory disorder [Unknown]
  - Bundle branch block right [Unknown]
  - Hypervolaemia [Unknown]
  - Interstitial lung disease [Unknown]
  - Haematoma [Unknown]
  - Chest discomfort [Unknown]
  - Ecchymosis [Unknown]
  - Blood cholesterol increased [Unknown]
  - Alanine aminotransferase abnormal [Unknown]
  - Neutrophil count abnormal [Unknown]
  - Condition aggravated [Unknown]
  - Lymphocyte count abnormal [Unknown]
  - Lymphocyte count decreased [Unknown]
  - Fatigue [Unknown]
  - Urinary tract infection [Unknown]
  - Sinus bradycardia [Unknown]
  - Bradycardia [Unknown]
  - White blood cell count decreased [Unknown]
  - Hypersensitivity [Not Recovered/Not Resolved]
  - Off label use [Unknown]

NARRATIVE: CASE EVENT DATE: 20210401
